FAERS Safety Report 4491016-8 (Version None)
Quarter: 2004Q4

REPORT INFORMATION
  Report Type: 
  Country: None (occurrence: None)
  Receive Date: 20041027
  Receipt Date: 20041014
  Transmission Date: 20050328
  Serious: Yes (Death)
  Sender: FDA-Public Use
  Company Number: 2004239373ES

PATIENT
  Age: 81 Year
  Sex: 0

DRUGS (2)
  1. IDARUBICIN HCL [Suspect]
     Indication: ACUTE PROMYELOCYTIC LEUKAEMIA
     Dosage: 12 MG/M2, QD, IV BOLUS
     Route: 040
  2. ATRA (ALL-TRANS-RETINOIC ACID) [Suspect]
     Indication: ACUTE PROMYELOCYTIC LEUKAEMIA
     Dosage: 45 MG/M2, QD, ORAL
     Route: 048

REACTIONS (4)
  - DRUG TOXICITY [None]
  - GASTROINTESTINAL TOXICITY [None]
  - PERISTALSIS VISIBLE [None]
  - VOLVULUS OF BOWEL [None]
